FAERS Safety Report 9479407 (Version 3)
Quarter: 2016Q2

REPORT INFORMATION
  Report Type: Report from Study
  Country: US (occurrence: US)
  Receive Date: 20130827
  Receipt Date: 20160503
  Transmission Date: 20160815
  Serious: Yes (Other)
  Sender: FDA-Public Use
  Company Number: US-ROCHE-1266878

PATIENT
  Sex: Male

DRUGS (14)
  1. AVASTIN [Suspect]
     Active Substance: BEVACIZUMAB
     Indication: GLAUCOMA
  2. COSOPT [Concomitant]
     Active Substance: DORZOLAMIDE HYDROCHLORIDE\TIMOLOL MALEATE
     Route: 065
  3. AVASTIN [Suspect]
     Active Substance: BEVACIZUMAB
     Indication: MACULAR OEDEMA
     Dosage: 1.25MG/0.05ML GIVEN (INJECTION, SITE: 3-4MM FROM LIMBUS, OS)
     Route: 050
     Dates: start: 20130718, end: 20130718
  4. LATANOPROST. [Concomitant]
     Active Substance: LATANOPROST
     Dosage: 1 GTT
     Route: 047
  5. AVASTIN [Suspect]
     Active Substance: BEVACIZUMAB
     Indication: VITREOUS DETACHMENT
  6. BETADINE [Concomitant]
     Active Substance: POVIDONE-IODINE
     Route: 065
  7. AVASTIN [Suspect]
     Active Substance: BEVACIZUMAB
     Indication: MACULAR CYST
  8. LATANOPROST. [Concomitant]
     Active Substance: LATANOPROST
     Route: 047
  9. ACETYLSALICYLIC ACID [Concomitant]
     Active Substance: ASPIRIN
     Route: 048
  10. AVASTIN [Suspect]
     Active Substance: BEVACIZUMAB
     Indication: RETINAL VEIN OCCLUSION
  11. AVASTIN [Suspect]
     Active Substance: BEVACIZUMAB
     Indication: RETINAL HAEMORRHAGE
  12. METAMUCIL [Concomitant]
     Active Substance: PLANTAGO SEED
     Route: 048
  13. TROPICAMIDE. [Concomitant]
     Active Substance: TROPICAMIDE
     Route: 065
  14. PHENYLEPHRINE [Concomitant]
     Active Substance: PHENYLEPHRINE\PHENYLEPHRINE HYDROCHLORIDE
     Route: 065

REACTIONS (5)
  - Vision blurred [Not Recovered/Not Resolved]
  - Macular oedema [Unknown]
  - Off label use [Unknown]
  - Vitreous floaters [Unknown]
  - Vision blurred [Recovering/Resolving]
